FAERS Safety Report 8511520 (Version 2)
Quarter: 2014Q1

REPORT INFORMATION
  Report Type: Spontaneous
  Country: US (occurrence: US)
  Receive Date: 20120413
  Receipt Date: 20140113
  Transmission Date: 20141002
  Serious: No
  Sender: FDA-Public Use
  Company Number: US-ASTRAZENECA-2011SE75036

PATIENT
  Age: 39 Year
  Sex: Female
  Weight: 81.6 kg

DRUGS (6)
  1. NEXIUM [Suspect]
     Route: 048
  2. BRILINTA [Suspect]
     Indication: MYOCARDIAL INFARCTION
     Route: 048
     Dates: start: 201310, end: 201401
  3. LISINOPRIL [Suspect]
     Indication: BLOOD PRESSURE
     Route: 048
     Dates: start: 201310
  4. PLAVIX [Concomitant]
  5. ASPIRIN [Concomitant]
     Indication: MYOCARDIAL INFARCTION
  6. LOPRESSOR [Concomitant]
     Indication: HYPERTENSION

REACTIONS (4)
  - Blood glucose increased [Unknown]
  - Blood cholesterol increased [Unknown]
  - Malaise [Unknown]
  - Drug dose omission [Unknown]
